FAERS Safety Report 4501273-7 (Version None)
Quarter: 2004Q4

REPORT INFORMATION
  Report Type: 
  Country: None (occurrence: None)
  Receive Date: 20041110
  Receipt Date: 20041027
  Transmission Date: 20050328
  Serious: Yes (Hospitalization)
  Sender: FDA-Public Use
  Company Number: 2004242224DE

PATIENT
  Age: 50 Year
  Sex: Female
  Weight: 75 kg

DRUGS (2)
  1. FARMORUBICIN(EPIRUBICIN HYDROCHLORIDE) SOLUTION, STERILE [Suspect]
     Indication: BREAST CANCER
     Dosage: 162 MG, CYCLE 4, IV
     Route: 042
     Dates: start: 20041019, end: 20041019
  2. CYCLOPHOSPHAMIDE [Suspect]
     Indication: BREAST CANCER
     Dosage: 1080 MG, CYCLE 4, IV
     Route: 042
     Dates: start: 20041019, end: 20041019

REACTIONS (2)
  - DEHYDRATION [None]
  - HYPOVOLAEMIC SHOCK [None]
